FAERS Safety Report 5227149-8 (Version None)
Quarter: 2007Q1

REPORT INFORMATION
  Report Type: 
  Country: None (occurrence: None)
  Receive Date: 20070201
  Receipt Date: 20070201
  Transmission Date: 20070707
  Serious: Yes (Other)
  Sender: FDA-Public Use
  Company Number: None

PATIENT
  Sex: Male
  Weight: 63.5036 kg

DRUGS (12)
  1. ZOMETA [Suspect]
     Indication: METASTASES TO BONE
     Dosage: 4MG EVERY 4 WEEKS IV DRIP
     Route: 041
     Dates: start: 20060601, end: 20070129
  2. ZOMETA [Suspect]
     Indication: NON-SMALL CELL LUNG CANCER
     Dosage: 4MG EVERY 4 WEEKS IV DRIP
     Route: 041
     Dates: start: 20060601, end: 20070129
  3. ETOPOSIDE [Concomitant]
  4. CARBOPLATIN [Concomitant]
  5. TAXOL [Concomitant]
  6. AVASTIN [Concomitant]
  7. ALOXI [Concomitant]
  8. DEXAMETHASONE TAB [Concomitant]
  9. TAGAMET [Concomitant]
  10. BENADRYL [Concomitant]
  11. OXYCONTIN [Concomitant]
  12. PRILOSEC [Concomitant]

REACTIONS (1)
  - OSTEONECROSIS [None]
